FAERS Safety Report 6067438-0 (Version None)
Quarter: 2009Q1

REPORT INFORMATION
  Report Type: 
  Country: None (occurrence: None)
  Receive Date: 20090205
  Receipt Date: 20090124
  Transmission Date: 20090719
  Serious: Yes (Hospitalization)
  Sender: FDA-Public Use
  Company Number: IT-PFIZER INC-2007046703

PATIENT
  Sex: Female
  Weight: 64 kg

DRUGS (7)
  1. SUNITINIB MALATE [Suspect]
     Indication: BREAST CANCER
     Dosage: 25 MG, 1X/DAY
     Route: 048
     Dates: start: 20070303, end: 20070531
  2. *TRASTUZUMAB [Suspect]
     Indication: BREAST CANCER
     Dosage: 6 MG/KG, EVERY 3 WEEKS
     Route: 042
     Dates: start: 20070302, end: 20070525
  3. DOCETAXEL [Suspect]
     Indication: BREAST CANCER
     Dosage: 60 MG/M2, EVERY 3 WEEKS, TDD 100 MG
     Route: 042
     Dates: start: 20070525, end: 20070525
  4. LANSOX [Concomitant]
  5. NEUPOGEN [Concomitant]
     Route: 058
     Dates: start: 20070531, end: 20070606
  6. AULIN [Concomitant]
     Route: 048
     Dates: start: 20070531
  7. LEVOFLOXACIN [Concomitant]
     Route: 048
     Dates: start: 20070531, end: 20070606

REACTIONS (2)
  - ERYSIPELAS [None]
  - NEUTROPENIA [None]
